FAERS Safety Report 11847187 (Version 1)
Quarter: 2015Q4

REPORT INFORMATION
  Report Type: Spontaneous
  Country: US (occurrence: US)
  Receive Date: 20151217
  Receipt Date: 20151217
  Transmission Date: 20160305
  Serious: No
  Sender: FDA-Public Use
  Company Number: US-ROCHE-1528932

PATIENT
  Sex: Female

DRUGS (1)
  1. TAMIFLU [Suspect]
     Active Substance: OSELTAMIVIR PHOSPHATE
     Indication: PROPHYLAXIS
     Route: 065
     Dates: start: 20150115

REACTIONS (4)
  - Aphthous ulcer [Unknown]
  - Influenza [Recovered/Resolved]
  - Bone pain [Recovered/Resolved]
  - Feeling abnormal [Recovered/Resolved]
